FAERS Safety Report 4862515-1 (Version None)
Quarter: 2005Q4

REPORT INFORMATION
  Report Type: 
  Country: None (occurrence: None)
  Receive Date: 20051221
  Receipt Date: 20051212
  Transmission Date: 20060501
  Serious: Yes (Hospitalization)
  Sender: FDA-Public Use
  Company Number: PHHO2005NL19360

PATIENT
  Age: 46 Year
  Sex: Female

DRUGS (1)
  1. LETROZOLE [Suspect]
     Indication: BREAST CANCER METASTATIC
     Dosage: 2.5 MG, QD
     Route: 048
     Dates: start: 20050609

REACTIONS (5)
  - ANGIOPATHY [None]
  - DYSPNOEA [None]
  - PYREXIA [None]
  - SKIN TOXICITY [None]
  - TOXIC SKIN ERUPTION [None]
